FAERS Safety Report 18659279 (Version 1)
Quarter: 2020Q4

REPORT INFORMATION
  Report Type: Spontaneous
  Country: IT (occurrence: IT)
  Receive Date: 20201224
  Receipt Date: 20201224
  Transmission Date: 20210114
  Serious: Yes (Hospitalization)
  Sender: FDA-Public Use
  Company Number: IT-TEVA-2020-IT-1862963

PATIENT
  Age: 60 Year
  Sex: Female

DRUGS (4)
  1. HYDROXYCHLOROQUINE [Suspect]
     Active Substance: HYDROXYCHLOROQUINE
     Indication: COVID-19 PNEUMONIA
     Route: 065
     Dates: start: 202003
  2. PARENTERAL NUTRITION [Suspect]
     Active Substance: AMINO ACIDS\DEXTROSE\ELECTROLYTES NOS
     Indication: PARENTERAL NUTRITION
     Route: 065
     Dates: start: 2020
  3. DARUNAVIR/COBICISTAT [Suspect]
     Active Substance: COBICISTAT\DARUNAVIR ETHANOLATE
     Indication: COVID-19 PNEUMONIA
     Route: 065
     Dates: start: 202003
  4. INFLIXIMAB BIOSIMILAR CT-P13 [Suspect]
     Active Substance: INFLIXIMAB-DYYB
     Indication: COLITIS ULCERATIVE
     Dosage: INFUSION
     Route: 065
     Dates: start: 202002, end: 202002

REACTIONS (7)
  - Septic shock [Recovered/Resolved]
  - Drug ineffective [Unknown]
  - COVID-19 pneumonia [Recovered/Resolved]
  - Device related infection [Recovered/Resolved]
  - Off label use [Unknown]
  - Anaemia [Unknown]
  - Post procedural infection [Recovered/Resolved]

NARRATIVE: CASE EVENT DATE: 2020
